FAERS Safety Report 9371939 (Version 2)
Quarter: 2013Q3

REPORT INFORMATION
  Report Type: Spontaneous
  Country: FR (occurrence: FR)
  Receive Date: 20130627
  Receipt Date: 20130703
  Transmission Date: 20140515
  Serious: Yes (Death, Hospitalization)
  Sender: FDA-Public Use
  Company Number: FR-PFIZER INC-2013190308

PATIENT
  Age: 82 Year
  Sex: Male

DRUGS (12)
  1. CORDARONE [Suspect]
     Dosage: 200 MG, DAILY
     Route: 048
     Dates: end: 20130525
  2. FUROSEMIDE [Suspect]
     Dosage: DAILY
     Route: 048
     Dates: end: 20130521
  3. FUROSEMIDE [Suspect]
     Dosage: 2 TABLETS DAILY
     Route: 048
     Dates: start: 20130522
  4. IMOVANE [Concomitant]
     Dosage: UNK
  5. KARDEGIC [Concomitant]
  6. TAHOR [Concomitant]
  7. PRADAXA [Concomitant]
     Dosage: UNK
     Dates: end: 20130525
  8. INEXIUM [Concomitant]
  9. ALDACTONE [Concomitant]
  10. TRIATEC [Concomitant]
  11. CARDENSIEL [Concomitant]
  12. XATRAL [Concomitant]

REACTIONS (5)
  - Cardiac failure [Fatal]
  - Lung disorder [Fatal]
  - Dyspnoea [Unknown]
  - Somnolence [Not Recovered/Not Resolved]
  - Oedema peripheral [Unknown]
